FAERS Safety Report 8105977-9 (Version None)
Quarter: 2012Q1

REPORT INFORMATION
  Report Type: 
  Country: None (occurrence: None)
  Receive Date: 20120202
  Receipt Date: 20120126
  Transmission Date: 20120608
  Serious: No
  Sender: FDA-Public Use
  Company Number: US-BIOGENIDEC-2012BI003333

PATIENT
  Age: 41 Year
  Sex: Female

DRUGS (2)
  1. TYSABRI [Suspect]
     Indication: MULTIPLE SCLEROSIS
     Route: 042
     Dates: start: 20090325, end: 20090624
  2. TYSABRI [Suspect]
     Route: 042
     Dates: start: 20091118

REACTIONS (15)
  - NECK INJURY [None]
  - GAIT DISTURBANCE [None]
  - PAIN [None]
  - HEADACHE [None]
  - BACK INJURY [None]
  - MUSCULOSKELETAL STIFFNESS [None]
  - PARAESTHESIA [None]
  - SPINAL COLUMN INJURY [None]
  - SPINAL COLUMN STENOSIS [None]
  - VISUAL IMPAIRMENT [None]
  - DYSSTASIA [None]
  - ROAD TRAFFIC ACCIDENT [None]
  - NERVE INJURY [None]
  - MOBILITY DECREASED [None]
  - HYPOAESTHESIA [None]
